FAERS Safety Report 6494153-1 (Version None)
Quarter: 2009Q4

REPORT INFORMATION
  Report Type: 
  Country: None (occurrence: None)
  Receive Date: 20091214
  Receipt Date: 20090112
  Transmission Date: 20100525
  Serious: No
  Sender: FDA-Public Use
  Company Number: US-BRISTOL-MYERS SQUIBB COMPANY-14467153

PATIENT
  Age: 20 Year
  Sex: Male

DRUGS (4)
  1. ABILIFY [Suspect]
     Indication: SCHIZOPHRENIA
     Dosage: INITIATED AT 5MG AND INCREASED GRADUALLY TO 20MG
  2. ABILIFY [Suspect]
     Indication: AUTISM
     Dosage: INITIATED AT 5MG AND INCREASED GRADUALLY TO 20MG
  3. COGENTIN [Concomitant]
  4. LEXAPRO [Concomitant]

REACTIONS (4)
  - APATHY [None]
  - SEDATION [None]
  - TREMOR [None]
  - URINARY INCONTINENCE [None]
